FAERS Safety Report 10011568 (Version 1)
Quarter: 2014Q1

REPORT INFORMATION
  Report Type: Spontaneous
  Country: US (occurrence: None)
  Receive Date: 20140313
  Receipt Date: 20140313
  Transmission Date: 20141002
  Serious: Yes (Other)
  Sender: FDA-Public Use
  Company Number: None

PATIENT
  Sex: 0

DRUGS (4)
  1. CIPROFLOXACIN [Suspect]
  2. METRONIDAZOL [Suspect]
  3. LEVOFLOXACIN [Suspect]
  4. FLAGYL [Suspect]

REACTIONS (5)
  - Arthralgia [None]
  - Arthralgia [None]
  - Bone pain [None]
  - Joint swelling [None]
  - Local swelling [None]
